FAERS Safety Report 5208083-6 (Version None)
Quarter: 2007Q1

REPORT INFORMATION
  Report Type: 
  Country: None (occurrence: None)
  Receive Date: 20070115
  Receipt Date: 20070108
  Transmission Date: 20070707
  Serious: Yes (Other)
  Sender: FDA-Public Use
  Company Number: AU-ROCHE-463632

PATIENT
  Age: 37 Year
  Sex: Female
  Weight: 50.4 kg

DRUGS (7)
  1. PEGASYS [Suspect]
     Route: 058
     Dates: start: 20060914, end: 20060914
  2. MOCLOBEMIDE [Concomitant]
     Dates: start: 20060615
  3. OROXINE [Concomitant]
     Indication: THYROIDITIS
     Dates: start: 19940615
  4. PANAFEN [Concomitant]
     Dosage: REPORTED AS PANAFEN PLUS. DOSAGE REGIMEN REPORTED AS ONE TABLET.
     Dates: start: 20050615
  5. DIAZEPAM [Concomitant]
  6. CODEINE SUL TAB [Concomitant]
  7. IBUPROFEN [Concomitant]
     Indication: PAIN

REACTIONS (6)
  - INJECTION SITE REACTION [None]
  - PALMAR ERYTHEMA [None]
  - RASH [None]
  - SWOLLEN TONGUE [None]
  - THROAT TIGHTNESS [None]
  - URTICARIA [None]
